FAERS Safety Report 20584384 (Version 2)
Quarter: 2024Q1

REPORT INFORMATION
  Report Type: Spontaneous
  Country: US (occurrence: US)
  Receive Date: 20220311
  Receipt Date: 20240130
  Transmission Date: 20240410
  Serious: No
  Sender: FDA-Public Use
  Company Number: US-HORIZON THERAPEUTICS-HZN-2021-004917

PATIENT

DRUGS (2)
  1. PENNSAID [Suspect]
     Active Substance: DICLOFENAC SODIUM
     Indication: Osteoarthritis
     Dosage: 40 MG, BID ONE PUMP TO EACH KNEE
     Route: 065
  2. PENNSAID [Suspect]
     Active Substance: DICLOFENAC SODIUM
     Dosage: 2 PUMPS, BID
     Route: 065

REACTIONS (3)
  - Back pain [Not Recovered/Not Resolved]
  - Arthralgia [Unknown]
  - Underdose [Unknown]
